FAERS Safety Report 8492129-6 (Version None)
Quarter: 2012Q2

REPORT INFORMATION
  Report Type: 
  Country: None (occurrence: None)
  Receive Date: 20120627
  Receipt Date: 20120614
  Transmission Date: 20120825
  Serious: Yes (Other)
  Sender: FDA-Public Use
  Company Number: DSU-2012-04858

PATIENT
  Age: 74 Year
  Sex: Female
  Weight: 47.6277 kg

DRUGS (5)
  1. SYNTHROID (LEVOTHYROXINE SODIUM) (LEVOTHYROXINE SODIUM) [Concomitant]
  2. BENICAR [Suspect]
     Indication: HYPERTENSION
     Dosage: 40 MG (40 MG, QD), PER ORAL 40 MG (2- MG, BID), PER ORAL 40 MG (20 MG, ONE-HALF TABLET OR 40 MG BID)
     Route: 048
     Dates: start: 20030101, end: 20120601
  3. BENICAR [Suspect]
     Indication: HYPERTENSION
     Dosage: 40 MG (40 MG, QD), PER ORAL 40 MG (2- MG, BID), PER ORAL 40 MG (20 MG, ONE-HALF TABLET OR 40 MG BID)
     Route: 048
     Dates: start: 20120601
  4. BENICAR [Suspect]
     Indication: HYPERTENSION
     Dosage: 40 MG (40 MG, QD), PER ORAL 40 MG (2- MG, BID), PER ORAL 40 MG (20 MG, ONE-HALF TABLET OR 40 MG BID)
     Route: 048
     Dates: start: 20030101, end: 20030101
  5. FASLODEX [Suspect]
     Indication: BREAST CANCER METASTATIC

REACTIONS (7)
  - ECONOMIC PROBLEM [None]
  - BONE CANCER METASTATIC [None]
  - WEIGHT INCREASED [None]
  - HEART RATE INCREASED [None]
  - BREAST CANCER METASTATIC [None]
  - HYPOTENSION [None]
  - OVARIAN CANCER [None]
